FAERS Safety Report 8137728-6 (Version None)
Quarter: 2012Q1

REPORT INFORMATION
  Report Type: 
  Country: None (occurrence: None)
  Receive Date: 20120215
  Receipt Date: 20120213
  Transmission Date: 20120608
  Serious: No
  Sender: FDA-Public Use
  Company Number: US-PFIZER INC-2012040039

PATIENT
  Sex: Male
  Weight: 68.027 kg

DRUGS (2)
  1. CHANTIX [Suspect]
     Indication: SMOKING CESSATION THERAPY
     Dosage: 0.5 MG, DAILY
     Route: 048
     Dates: start: 20120210, end: 20120201
  2. CHANTIX [Suspect]
     Dosage: UNK
     Route: 048
     Dates: start: 20120201

REACTIONS (1)
  - MALAISE [None]
